FAERS Safety Report 21923231 (Version 2)
Quarter: 2023Q1

REPORT INFORMATION
  Report Type: Spontaneous
  Country: JP (occurrence: JP)
  Receive Date: 20230129
  Receipt Date: 20230306
  Transmission Date: 20230418
  Serious: Yes (Hospitalization)
  Sender: FDA-Public Use
  Company Number: JP-002147023-NVSJ2023JP001996

PATIENT
  Age: 52 Year
  Sex: Male
  Weight: 57 kg

DRUGS (4)
  1. MAYZENT [Suspect]
     Active Substance: SIPONIMOD
     Indication: Secondary progressive multiple sclerosis
     Dosage: 0.25 MG
     Route: 048
     Dates: start: 20201208, end: 20201209
  2. MAYZENT [Suspect]
     Active Substance: SIPONIMOD
     Dosage: 0.5 MG
     Route: 048
     Dates: start: 20201210, end: 20201210
  3. MAYZENT [Suspect]
     Active Substance: SIPONIMOD
     Dosage: 0.75 MG
     Route: 048
     Dates: start: 20201211, end: 20201211
  4. MAYZENT [Suspect]
     Active Substance: SIPONIMOD
     Dosage: 1 MG
     Route: 048
     Dates: start: 20201212

REACTIONS (1)
  - COVID-19 [Recovered/Resolved]

NARRATIVE: CASE EVENT DATE: 20221226
